FAERS Safety Report 14713397 (Version 2)
Quarter: 2018Q2

REPORT INFORMATION
  Report Type: Spontaneous
  Country: US (occurrence: US)
  Receive Date: 20180404
  Receipt Date: 20180409
  Transmission Date: 20180711
  Serious: Yes (Other)
  Sender: FDA-Public Use
  Company Number: US-TEVA-2018-US-876184

PATIENT
  Age: 59 Year
  Sex: Female

DRUGS (21)
  1. MIRALAX [Concomitant]
     Active Substance: POLYETHYLENE GLYCOL 3350
     Indication: IRRITABLE BOWEL SYNDROME
  2. EFFEXOR XR [Concomitant]
     Active Substance: VENLAFAXINE HYDROCHLORIDE
     Indication: DEPRESSION
  3. QVAR [Suspect]
     Active Substance: BECLOMETHASONE DIPROPIONATE
     Indication: ASTHMA
  4. DEXILANT [Concomitant]
     Active Substance: DEXLANSOPRAZOLE
     Indication: GASTROOESOPHAGEAL REFLUX DISEASE
  5. QVAR [Suspect]
     Active Substance: BECLOMETHASONE DIPROPIONATE
     Indication: OESOPHAGITIS
  6. ESTRADIOL. [Concomitant]
     Active Substance: ESTRADIOL
     Indication: ATROPHIC VULVOVAGINITIS
  7. XYZAL [Concomitant]
     Active Substance: LEVOCETIRIZINE DIHYDROCHLORIDE
     Indication: HYPERSENSITIVITY
  8. MELATONIN [Concomitant]
     Active Substance: MELATONIN
     Indication: SLEEP DISORDER
  9. QVAR [Suspect]
     Active Substance: BECLOMETHASONE DIPROPIONATE
     Indication: CANDIDA INFECTION
     Dosage: TWO PUFFS IN THE MORNING AND?EVENING
     Route: 065
  10. KLONOPIN [Concomitant]
     Active Substance: CLONAZEPAM
     Indication: INSOMNIA
  11. VENTOLIN [Concomitant]
     Active Substance: ALBUTEROL SULFATE
  12. COLACE [Concomitant]
     Active Substance: DOCUSATE SODIUM
     Indication: IRRITABLE BOWEL SYNDROME
  13. EPIPEN [Concomitant]
     Active Substance: EPINEPHRINE
     Indication: HYPERSENSITIVITY
  14. SINGULAIR [Concomitant]
     Active Substance: MONTELUKAST SODIUM
     Indication: HYPERSENSITIVITY
  15. NASACORT AQ [Concomitant]
     Active Substance: TRIAMCINOLONE ACETONIDE
     Indication: HYPERSENSITIVITY
  16. QVAR [Suspect]
     Active Substance: BECLOMETHASONE DIPROPIONATE
     Indication: GASTRITIS
  17. KLONOPIN [Concomitant]
     Active Substance: CLONAZEPAM
     Indication: ANXIETY
  18. VIACTIV [Concomitant]
     Active Substance: CALCIUM\VITAMIN D\VITAMIN K5
     Indication: MINERAL SUPPLEMENTATION
  19. VITAMIN D [Concomitant]
     Active Substance: CHOLECALCIFEROL
     Indication: VITAMIN D DEFICIENCY
  20. NYSTATIN. [Concomitant]
     Active Substance: NYSTATIN
     Indication: FUNGAL INFECTION
  21. FLOVENT [Concomitant]
     Active Substance: FLUTICASONE PROPIONATE
     Indication: ASTHMA

REACTIONS (19)
  - Headache [Not Recovered/Not Resolved]
  - Drug ineffective [Unknown]
  - Choking [Not Recovered/Not Resolved]
  - Oropharyngeal pain [Not Recovered/Not Resolved]
  - Throat tightness [Not Recovered/Not Resolved]
  - Panic attack [Unknown]
  - Sleep disorder [Unknown]
  - Secretion discharge [Unknown]
  - Dysphagia [Not Recovered/Not Resolved]
  - Aneurysm [Not Recovered/Not Resolved]
  - Arteriosclerosis [Not Recovered/Not Resolved]
  - Dysphonia [Not Recovered/Not Resolved]
  - Concussion [Unknown]
  - Drug prescribing error [Unknown]
  - Cough [Unknown]
  - Vestibular migraine [Not Recovered/Not Resolved]
  - Road traffic accident [Recovered/Resolved]
  - Thrombosis [Unknown]
  - Aphonia [Not Recovered/Not Resolved]

NARRATIVE: CASE EVENT DATE: 2016
